FAERS Safety Report 7516271-9 (Version None)
Quarter: 2011Q2

REPORT INFORMATION
  Report Type: 
  Country: None (occurrence: None)
  Receive Date: 20110601
  Receipt Date: 20110519
  Transmission Date: 20111010
  Serious: Yes (Other)
  Sender: FDA-Public Use
  Company Number: PHHY2011JP33383

PATIENT
  Age: 74 Year
  Sex: Male

DRUGS (5)
  1. ANTIBIOTICS [Suspect]
     Indication: INFECTION
  2. LANDSEN [Concomitant]
     Indication: EPILEPSY
     Route: 048
  3. CARBAMAZEPINE [Suspect]
     Indication: EPILEPSY
     Dosage: 2 DF, TID
     Route: 048
  4. DEPAKENE [Concomitant]
     Indication: EPILEPSY
     Route: 048
  5. VALPROATE SODIUM [Concomitant]
     Indication: EPILEPSY
     Route: 048

REACTIONS (4)
  - ANTICONVULSANT DRUG LEVEL INCREASED [None]
  - BLOOD CREATININE INCREASED [None]
  - ALTERED STATE OF CONSCIOUSNESS [None]
  - RENAL DISORDER [None]
